FAERS Safety Report 4480381-3 (Version None)
Quarter: 2004Q4

REPORT INFORMATION
  Report Type: 
  Country: None (occurrence: None)
  Receive Date: 20041018
  Receipt Date: 20040930
  Transmission Date: 20050328
  Serious: Yes (Other)
  Sender: FDA-Public Use
  Company Number: 2004IC000542

PATIENT
  Age: 65 Year
  Sex: Male

DRUGS (19)
  1. FLUOROURACIL [Suspect]
     Indication: COLORECTAL CANCER METASTATIC
     Dosage: 400 + 3000 MG/M**2; UNKNOWN;INTRAVENOUS BOLUS
     Route: 040
     Dates: end: 20000423
  2. FLUOROURACIL [Suspect]
     Indication: COLORECTAL CANCER METASTATIC
     Dosage: 400 + 3000 MG/M**2; UNKNOWN;INTRAVENOUS BOLUS
     Route: 040
     Dates: start: 19991112
  3. OXALIPLATIN (OXALIPLATIN) [Suspect]
     Indication: COLORECTAL CANCER METASTATIC
     Dosage: 85 MG/M**2;UNKNOWN; INTRAVENOUS
     Route: 042
  4. LEUCOVORIN CALCIUM [Suspect]
     Indication: COLORECTAL CANCER METASTATIC
     Dosage: 150 MG/M**2; UNKNOWN; INTRAVENOUS
     Route: 042
  5. VALIUM [Concomitant]
  6. GASCON [Concomitant]
  7. ALDACTONE-A [Concomitant]
  8. MAGNESIUM [Concomitant]
  9. SENOKOT [Concomitant]
  10. DOXAZOSIN MESYLATE [Concomitant]
  11. TRAMAL [Concomitant]
  12. METOCLOPRAMIDE [Concomitant]
  13. PARACETAMOL [Concomitant]
  14. ALLOPURINOL [Concomitant]
  15. TRAMADOL HCL [Concomitant]
  16. MOBIC [Concomitant]
  17. LASIX [Concomitant]
  18. CHLORZOXAZONE [Concomitant]
  19. ATIVAN [Concomitant]

REACTIONS (2)
  - NEUROPATHY [None]
  - NEUROTOXICITY [None]
